FAERS Safety Report 9208940 (Version 3)
Quarter: 2013Q3

REPORT INFORMATION
  Report Type: Spontaneous
  Country: US (occurrence: None)
  Receive Date: 20120817
  Receipt Date: 20130815
  Transmission Date: 20140515
  Serious: Yes (Other)
  Sender: FDA-Public Use
  Company Number: ADR-2012-00984

PATIENT
  Sex: Male

DRUGS (2)
  1. BALCLOFEN INTRATHECAL [Suspect]
     Indication: SPINAL CORD INJURY
  2. BALCLOFEN INTRATHECAL [Suspect]
     Indication: MUSCLE SPASTICITY

REACTIONS (4)
  - Failure to thrive [None]
  - Respiratory disorder [None]
  - Cystitis [None]
  - Pain [None]
